FAERS Safety Report 4581662-5 (Version None)
Quarter: 2005Q1

REPORT INFORMATION
  Report Type: 
  Country: None (occurrence: None)
  Receive Date: 20050214
  Receipt Date: 20041214
  Transmission Date: 20050727
  Serious: No
  Sender: FDA-Public Use
  Company Number: US-GLAXOSMITHKLINE-A0537232A

PATIENT
  Age: 39 Year
  Sex: Female
  Weight: 79.5 kg

DRUGS (10)
  1. LAMICTAL [Suspect]
     Indication: ILL-DEFINED DISORDER
     Dosage: 25MG PER DAY
     Route: 048
     Dates: start: 20041012
  2. PAXIL CR [Concomitant]
     Route: 048
  3. ACTIVA [Concomitant]
     Dosage: 1MG PER DAY
     Route: 065
  4. THORAZINE [Concomitant]
     Dosage: 40MG UNKNOWN
     Route: 048
  5. AMBIEN [Concomitant]
     Dosage: 20MG UNKNOWN
     Route: 048
  6. PROTONIX [Concomitant]
     Dosage: 40MG TWICE PER DAY
     Route: 048
  7. PYRIDIUM [Concomitant]
  8. LIBRAX [Concomitant]
  9. ULTRACET [Concomitant]
  10. FIBERCON [Concomitant]

REACTIONS (1)
  - CYSTITIS INTERSTITIAL [None]
